FAERS Safety Report 13578304 (Version 1)
Quarter: 2017Q2

REPORT INFORMATION
  Report Type: Spontaneous
  Country: US (occurrence: US)
  Receive Date: 20170524
  Receipt Date: 20170524
  Transmission Date: 20170830
  Serious: Yes (Hospitalization, Other)
  Sender: FDA-Public Use
  Company Number: US-TEVA-770710USA

PATIENT
  Age: 48 Year
  Sex: Male

DRUGS (5)
  1. DEMECLOCYCLINE [Suspect]
     Active Substance: DEMECLOCYCLINE
     Indication: INAPPROPRIATE ANTIDIURETIC HORMONE SECRETION
     Route: 065
  2. VASOPRESSIN. [Suspect]
     Active Substance: VASOPRESSIN
     Indication: VASOSPASM
     Dosage: INFUSION
     Route: 050
  3. SODIUM CHLORIDE. [Suspect]
     Active Substance: SODIUM CHLORIDE
     Indication: INAPPROPRIATE ANTIDIURETIC HORMONE SECRETION
     Dosage: 3% HYPERTONIC SALINE 50 ML/HOUR
     Route: 065
  4. NOREPINEPHRINE. [Concomitant]
     Active Substance: NOREPINEPHRINE
     Route: 065
  5. PHENYLEPHRINE [Concomitant]
     Active Substance: PHENYLEPHRINE\PHENYLEPHRINE HYDROCHLORIDE
     Route: 065

REACTIONS (5)
  - Diabetes insipidus [Recovered/Resolved]
  - Mental disorder [Unknown]
  - Cardiac failure [Unknown]
  - Withdrawal syndrome [Recovered/Resolved]
  - Atrial fibrillation [Unknown]
